FAERS Safety Report 14247325 (Version 1)
Quarter: 2017Q4

REPORT INFORMATION
  Report Type: Spontaneous
  Country: US (occurrence: US)
  Receive Date: 20171204
  Receipt Date: 20171204
  Transmission Date: 20180321
  Serious: Yes (Death, Hospitalization)
  Sender: FDA-Public Use
  Company Number: US-ASTRAZENECA-2017SF22373

PATIENT
  Age: 46 Year
  Sex: Male

DRUGS (10)
  1. BUPROPION. [Suspect]
     Active Substance: BUPROPION
     Route: 048
  2. LISINOPRIL. [Suspect]
     Active Substance: LISINOPRIL
     Route: 048
  3. METFORMIN [Suspect]
     Active Substance: METFORMIN HYDROCHLORIDE
     Route: 048
  4. AMLODIPINE [Suspect]
     Active Substance: AMLODIPINE BESYLATE
     Route: 048
  5. CITALOPRAM [Suspect]
     Active Substance: CITALOPRAM HYDROBROMIDE
     Route: 048
  6. LAMOTRIGINE. [Suspect]
     Active Substance: LAMOTRIGINE
     Route: 048
  7. ALPHA BLOCKER [Suspect]
     Active Substance: UNSPECIFIED INGREDIENT
     Route: 048
  8. QUETIAPINE. [Suspect]
     Active Substance: QUETIAPINE
     Route: 048
  9. FENOFIBRATE. [Suspect]
     Active Substance: FENOFIBRATE
     Route: 048
  10. ALCOHOL. [Suspect]
     Active Substance: ALCOHOL
     Route: 048

REACTIONS (2)
  - Toxicity to various agents [Fatal]
  - Completed suicide [Fatal]
